FAERS Safety Report 13332359 (Version 1)
Quarter: 2017Q1

REPORT INFORMATION
  Report Type: Spontaneous
  Country: US (occurrence: US)
  Receive Date: 20170314
  Receipt Date: 20170314
  Transmission Date: 20170428
  Serious: No
  Sender: FDA-Public Use
  Company Number: None

PATIENT
  Age: 76 Year
  Sex: Female
  Weight: 54.9 kg

DRUGS (6)
  1. AZELASTINE HCL NASAL SOLUTION [Suspect]
     Active Substance: AZELASTINE HYDROCHLORIDE
     Indication: NASAL CONGESTION
     Dosage: ?          QUANTITY:1 MILLILTIER;?
     Route: 055
     Dates: start: 20170309, end: 20170313
  2. VITAMIN D [Concomitant]
     Active Substance: CHOLECALCIFEROL
  3. LEVOTHYROXINE. [Concomitant]
     Active Substance: LEVOTHYROXINE
  4. ORGANIC PLANT CALCIUM MIXTURE FROM MYKIND ORGANICS [Concomitant]
  5. LIOTHYRONINE [Concomitant]
     Active Substance: LIOTHYRONINE
  6. RALOXIFENE. [Concomitant]
     Active Substance: RALOXIFENE

REACTIONS (4)
  - Ageusia [None]
  - Ear disorder [None]
  - Hypoacusis [None]
  - Drug ineffective [None]

NARRATIVE: CASE EVENT DATE: 20170309
